FAERS Safety Report 9256172 (Version 2)
Quarter: 2013Q3

REPORT INFORMATION
  Report Type: Spontaneous
  Country: US (occurrence: US)
  Receive Date: 20130425
  Receipt Date: 20130809
  Transmission Date: 20140515
  Serious: No
  Sender: FDA-Public Use
  Company Number: US-AMGEN-USASP2013002948

PATIENT
  Age: 69 Year
  Sex: Female
  Weight: 79.55 kg

DRUGS (4)
  1. NPLATE [Suspect]
     Indication: IMMUNE THROMBOCYTOPENIC PURPURA
     Dosage: 1 MCG/KG, QWK
     Dates: start: 20120622
  2. VITAMIN B-12 [Concomitant]
     Dosage: UNK UNK, QMO
  3. TOPROL [Concomitant]
  4. FOLATE [Concomitant]

REACTIONS (7)
  - Fatigue [Unknown]
  - Arthritis [Unknown]
  - Thyroid disorder [Unknown]
  - Platelet count abnormal [Unknown]
  - Arthropathy [Unknown]
  - Headache [Unknown]
  - Pain in extremity [Unknown]
